FAERS Safety Report 7821633-6 (Version None)
Quarter: 2011Q4

REPORT INFORMATION
  Report Type: 
  Country: None (occurrence: None)
  Receive Date: 20111018
  Receipt Date: 20100930
  Transmission Date: 20120403
  Serious: No
  Sender: FDA-Public Use
  Company Number: US-ASTRAZENECA-2010SE46159

PATIENT
  Age: 50 Year
  Sex: Male
  Weight: 122.5 kg

DRUGS (2)
  1. BYSTOLIC [Concomitant]
  2. SYMBICORT [Suspect]
     Indication: ASTHMA
     Dosage: TOTAL DAILY DOSAGE: 160 MCG, BID.
     Route: 055

REACTIONS (3)
  - DYSPNOEA EXERTIONAL [None]
  - COUGH [None]
  - DRUG DOSE OMISSION [None]
